FAERS Safety Report 21657514 (Version 2)
Quarter: 2022Q4

REPORT INFORMATION
  Report Type: Spontaneous
  Country: US (occurrence: US)
  Receive Date: 20221129
  Receipt Date: 20221215
  Transmission Date: 20230113
  Serious: No
  Sender: FDA-Public Use
  Company Number: US-BRISTOL-MYERS SQUIBB COMPANY-2022-144853

PATIENT
  Age: 69 Year
  Sex: Female
  Weight: 57.15 kg

DRUGS (2)
  1. REVLIMID [Suspect]
     Active Substance: LENALIDOMIDE
     Indication: Colon cancer
     Dosage: DAILY FOR 14 DAYS EVERY 21 DAYS
     Route: 048
  2. REVLIMID [Suspect]
     Active Substance: LENALIDOMIDE
     Indication: Plasma cell myeloma

REACTIONS (7)
  - Skin sensitisation [Unknown]
  - Oral pain [Recovering/Resolving]
  - Photophobia [Unknown]
  - Hypoaesthesia [Unknown]
  - Decreased appetite [Unknown]
  - Off label use [Unknown]
  - Rash [Unknown]
